FAERS Safety Report 20949328 (Version 3)
Quarter: 2022Q2

REPORT INFORMATION
  Report Type: Spontaneous
  Country: IT (occurrence: IT)
  Receive Date: 20220613
  Receipt Date: 20220620
  Transmission Date: 20220720
  Serious: Yes (Other)
  Sender: FDA-Public Use
  Company Number: None

PATIENT
  Age: 22 Year
  Sex: Female

DRUGS (2)
  1. SIMPONI [Suspect]
     Active Substance: GOLIMUMAB
     Indication: Product used for unknown indication
     Route: 042
     Dates: start: 20211020, end: 20220405
  2. SIMPONI [Suspect]
     Active Substance: GOLIMUMAB

REACTIONS (4)
  - Drug ineffective [Recovering/Resolving]
  - Iridocyclitis [Recovered/Resolved with Sequelae]
  - Product substitution [Recovered/Resolved with Sequelae]
  - Therapeutic response changed [Recovering/Resolving]

NARRATIVE: CASE EVENT DATE: 20220405
